FAERS Safety Report 8973475 (Version 1)
Quarter: 2012Q4

REPORT INFORMATION
  Report Type: 
  Country: JP (occurrence: JP)
  Receive Date: 20121218
  Receipt Date: 20121218
  Transmission Date: 20130627
  Serious: Yes (Hospitalization)
  Sender: FDA-Public Use
  Company Number: JP-B.I. PHARMACEUTICALS,INC./RIDGEFIELD-2012-BI-03209NB

PATIENT
  Age: 74 Year
  Sex: Male
  Weight: 75 kg

DRUGS (5)
  1. PRADAXA [Suspect]
     Indication: CEREBROVASCULAR ACCIDENT PROPHYLAXIS
     Route: 048
     Dates: start: 201206
  2. AMLODIN [Concomitant]
     Route: 065
  3. SELBEX [Concomitant]
     Route: 065
  4. HARNAL [Concomitant]
     Route: 065
  5. EVIPROSTAT [Concomitant]
     Route: 065

REACTIONS (2)
  - Fall [Unknown]
  - Decreased appetite [Unknown]
